FAERS Safety Report 9830616 (Version 1)
Quarter: 2014Q1

REPORT INFORMATION
  Report Type: Spontaneous
  Country: US (occurrence: US)
  Receive Date: 20140120
  Receipt Date: 20140120
  Transmission Date: 20141002
  Serious: No
  Sender: FDA-Public Use
  Company Number: US-TEVA-457193USA

PATIENT
  Age: 26 Year
  Sex: Female
  Weight: 81.27 kg

DRUGS (2)
  1. PARAGARD 380A [Suspect]
     Indication: DIAGNOSTIC PROCEDURE
     Route: 042
     Dates: start: 201311, end: 201312
  2. PROCARDIA [Concomitant]
     Indication: HYPERTENSION

REACTIONS (3)
  - Vaginal haemorrhage [Recovered/Resolved]
  - Pelvic pain [Recovered/Resolved]
  - Device expulsion [Recovered/Resolved]
